FAERS Safety Report 12550913 (Version 1)
Quarter: 2016Q3

REPORT INFORMATION
  Report Type: Spontaneous
  Country: AR (occurrence: AR)
  Receive Date: 20160712
  Receipt Date: 20160712
  Transmission Date: 20161109
  Serious: Yes (Other)
  Sender: FDA-Public Use
  Company Number: PHHY2016AR094981

PATIENT
  Age: 70 Year
  Sex: Female

DRUGS (8)
  1. DICLOFENAC SODIUM. [Suspect]
     Active Substance: DICLOFENAC SODIUM
     Indication: PRODUCT USED FOR UNKNOWN INDICATION
     Route: 065
  2. VASOTENAL [Concomitant]
     Indication: ARTERIAL DISORDER
     Route: 065
  3. LOSACOR [Concomitant]
     Active Substance: LOSARTAN POTASSIUM
     Indication: BLOOD PRESSURE ABNORMAL
     Route: 065
  4. ASPIRINA PREVENT [Concomitant]
     Active Substance: ASPIRIN
     Indication: PRODUCT USED FOR UNKNOWN INDICATION
     Route: 065
  5. ALPAX//ALPRAZOLAM [Concomitant]
     Indication: APATHY
     Dosage: 1 MG, UNK
     Route: 065
  6. GASTROMARK [Concomitant]
     Active Substance: FERUMOXSIL
     Indication: BLOOD PRESSURE ABNORMAL
     Route: 065
  7. PANTOPRAZOLE [Concomitant]
     Active Substance: PANTOPRAZOLE SODIUM
     Indication: DYSPEPSIA
     Route: 065
  8. SIMVASTATIN. [Concomitant]
     Active Substance: SIMVASTATIN
     Indication: PRODUCT USED FOR UNKNOWN INDICATION
     Route: 065

REACTIONS (8)
  - Visual impairment [Unknown]
  - Bone disorder [Unknown]
  - Visual acuity reduced [Unknown]
  - Blood pressure increased [Unknown]
  - Spinal cord disorder [Unknown]
  - Pain [Unknown]
  - Retinal vascular thrombosis [Unknown]
  - Nervousness [Unknown]
